FAERS Safety Report 14871605 (Version 1)
Quarter: 2018Q2

REPORT INFORMATION
  Report Type: Spontaneous
  Country: CA (occurrence: CA)
  Receive Date: 20180509
  Receipt Date: 20180509
  Transmission Date: 20180711
  Serious: Yes (Disabling, Other)
  Sender: FDA-Public Use
  Company Number: CA-BAYER-2018-085508

PATIENT
  Age: 43 Year
  Sex: Female
  Weight: 80 kg

DRUGS (2)
  1. VITAMIN B12 [Concomitant]
     Active Substance: CYANOCOBALAMIN
  2. MIRENA [Suspect]
     Active Substance: LEVONORGESTREL
     Indication: MENORRHAGIA
     Dosage: 20 MCG/24HR, CONT
     Route: 015

REACTIONS (5)
  - Depressed mood [Recovered/Resolved]
  - Hypertension [Recovered/Resolved]
  - Irritability [Recovered/Resolved]
  - Weight increased [Recovered/Resolved]
  - Anxiety [Recovered/Resolved]
